FAERS Safety Report 7503959-9 (Version None)
Quarter: 2011Q2

REPORT INFORMATION
  Report Type: 
  Country: None (occurrence: None)
  Receive Date: 20110524
  Receipt Date: 20110524
  Transmission Date: 20111010
  Serious: Yes (Other)
  Sender: FDA-Public Use
  Company Number: None

PATIENT
  Age: 69 Year
  Sex: Female
  Weight: 52.1637 kg

DRUGS (1)
  1. FOSAMAX [Suspect]
     Indication: OSTEOPOROSIS
     Dosage: 1 TAB WEEKLY
     Dates: start: 20030101, end: 20110101

REACTIONS (3)
  - DIZZINESS [None]
  - OSTEONECROSIS OF JAW [None]
  - NAUSEA [None]
